FAERS Safety Report 9513520 (Version 1)
Quarter: 2013Q3

REPORT INFORMATION
  Report Type: Spontaneous
  Country: US (occurrence: US)
  Receive Date: 20130910
  Receipt Date: 20130910
  Transmission Date: 20140515
  Serious: No
  Sender: FDA-Public Use
  Company Number: US-TARO-2013P1012114

PATIENT
  Sex: Male

DRUGS (2)
  1. WARFARIN SODIUM TABLETS USP 3MG [Suspect]
  2. WARFARIN SODIUM TABLETS USP 6MG [Suspect]

REACTIONS (2)
  - Hypersensitivity [Recovered/Resolved]
  - Reaction to drug excipients [Recovered/Resolved]
